FAERS Safety Report 6120357-3 (Version None)
Quarter: 2009Q1

REPORT INFORMATION
  Report Type: 
  Country: None (occurrence: None)
  Receive Date: 20090312
  Receipt Date: 20090312
  Transmission Date: 20090719
  Serious: Yes (Other)
  Sender: FDA-Public Use
  Company Number: None

PATIENT
  Age: 32 Year
  Sex: Male
  Weight: 89.3586 kg

DRUGS (1)
  1. PROVIGIL [Suspect]
     Indication: HYPERSOMNIA
     Dosage: 100 MG DAILY ORAL
     Route: 048
     Dates: start: 20090113, end: 20090227

REACTIONS (3)
  - LIP SWELLING [None]
  - MOUTH ULCERATION [None]
  - RASH [None]
